FAERS Safety Report 4269525-6 (Version None)
Quarter: 2004Q1

REPORT INFORMATION
  Report Type: 
  Country: None (occurrence: None)
  Receive Date: 20040112
  Receipt Date: 20040112
  Transmission Date: 20041129
  Serious: Yes (Hospitalization)
  Sender: FDA-Public Use
  Company Number: None

PATIENT
  Age: 85 Year
  Sex: Male

DRUGS (5)
  1. NPH ILETIN II [Suspect]
     Indication: DIABETES MELLITUS INSULIN-DEPENDENT
     Dosage: 50 U QAM /10 U QPM
     Dates: start: 19950301
  2. ZOCOR [Concomitant]
  3. SERTRALINE HCL [Concomitant]
  4. GOSGRELIN [Concomitant]
  5. METFORMIN HCL [Concomitant]

REACTIONS (2)
  - FALL [None]
  - HYPOGLYCAEMIA [None]
